FAERS Safety Report 7379273-1 (Version None)
Quarter: 2011Q1

REPORT INFORMATION
  Report Type: 
  Country: None (occurrence: None)
  Receive Date: 20110328
  Receipt Date: 20101104
  Transmission Date: 20110831
  Serious: Yes (Other)
  Sender: FDA-Public Use
  Company Number: GB-AMGEN-QUU433196

PATIENT
  Age: 58 Year
  Sex: Male
  Weight: 85 kg

DRUGS (4)
  1. ETANERCEPT [Suspect]
     Indication: RHEUMATOID ARTHRITIS
     Dosage: 25 MG, 2 TIMES/WK
     Route: 058
     Dates: start: 20040415
  2. CLOPIDOGREL [Concomitant]
     Dosage: UNK UNK, UNK
  3. PRAVASTATIN [Concomitant]
     Dosage: UNK UNK, UNK
  4. DICLOFENAC [Concomitant]
     Dosage: UNK UNK, UNK

REACTIONS (1)
  - ISCHAEMIC STROKE [None]
